FAERS Safety Report 4931365-X (Version None)
Quarter: 2006Q1

REPORT INFORMATION
  Report Type: 
  Country: None (occurrence: None)
  Receive Date: 20060303
  Receipt Date: 20050725
  Transmission Date: 20060701
  Serious: Yes (Death, Hospitalization, Other)
  Sender: FDA-Public Use
  Company Number: PHBS2005RU10813

PATIENT
  Age: 53 Year
  Sex: Male

DRUGS (3)
  1. GLEEVEC [Suspect]
     Indication: CHRONIC MYELOID LEUKAEMIA
     Dosage: 400 MG/D
     Route: 048
  2. GLEEVEC [Suspect]
     Dosage: 300 MG/D
     Route: 048
  3. GLEEVEC [Suspect]
     Dosage: 200 MG/D
     Route: 048

REACTIONS (7)
  - BLAST CRISIS IN MYELOGENOUS LEUKAEMIA [None]
  - BODY TEMPERATURE INCREASED [None]
  - HEPATIC ENZYME INCREASED [None]
  - HEPATOMEGALY [None]
  - LEUKOPENIA [None]
  - THROMBOCYTOPENIA [None]
  - WEIGHT DECREASED [None]
